FAERS Safety Report 12849144 (Version 2)
Quarter: 2016Q4

REPORT INFORMATION
  Report Type: Spontaneous
  Country: CA (occurrence: CA)
  Receive Date: 20161014
  Receipt Date: 20161103
  Transmission Date: 20170207
  Serious: Yes (Other)
  Sender: FDA-Public Use
  Company Number: CA-PFIZER INC-2016476409

PATIENT
  Age: 38 Year
  Sex: Female

DRUGS (3)
  1. ETOPOSIDE. [Suspect]
     Active Substance: ETOPOSIDE
     Indication: TERATOMA
     Dosage: 4 (UNSPECIFIED), CYCLIC
  2. BLEOMYCIN SULFATE [Suspect]
     Active Substance: BLEOMYCIN SULFATE
     Indication: TERATOMA
     Dosage: 4 (UNSPECIFIED), CYCLIC
  3. CISPLATIN. [Suspect]
     Active Substance: CISPLATIN
     Indication: TERATOMA
     Dosage: 4 (UNSPECIFIED), CYCLIC

REACTIONS (3)
  - Teratoma [Unknown]
  - Teratoma benign [Recovered/Resolved]
  - Condition aggravated [Unknown]
